FAERS Safety Report 21479876 (Version 1)
Quarter: 2022Q4

REPORT INFORMATION
  Report Type: Spontaneous
  Country: GR (occurrence: GR)
  Receive Date: 20221019
  Receipt Date: 20221019
  Transmission Date: 20230113
  Serious: Yes (Hospitalization, Other)
  Sender: FDA-Public Use
  Company Number: GR-AMGEN-GRCSP2022143170

PATIENT
  Age: 47 Year
  Sex: Male

DRUGS (1)
  1. ADALIMUMAB [Suspect]
     Active Substance: ADALIMUMAB
     Indication: Ankylosing spondylitis
     Dosage: UNK
     Route: 065
     Dates: start: 202002

REACTIONS (5)
  - Pancreatitis [Unknown]
  - Cholecystitis chronic [Unknown]
  - Lymphadenopathy [Unknown]
  - Cholelithiasis [Unknown]
  - Adenomyosis [Unknown]

NARRATIVE: CASE EVENT DATE: 20210101
